FAERS Safety Report 23407042 (Version 1)
Quarter: 2024Q1

REPORT INFORMATION
  Report Type: Spontaneous
  Country: None (occurrence: US)
  Receive Date: 20240116
  Receipt Date: 20240116
  Transmission Date: 20240409
  Serious: Yes (Other)
  Sender: FDA-Public Use
  Company Number: US-Troy Manufacturing, Inc. -2151369

PATIENT
  Sex: Female

DRUGS (1)
  1. ACTIVICE [Suspect]
     Active Substance: MENTHOL
     Route: 061

REACTIONS (1)
  - Application site burn [Recovering/Resolving]
